FAERS Safety Report 17061617 (Version 6)
Quarter: 2021Q1

REPORT INFORMATION
  Report Type: Report from Study
  Country: JP (occurrence: JP)
  Receive Date: 20191121
  Receipt Date: 20210204
  Transmission Date: 20210419
  Serious: Yes (Hospitalization, Other)
  Sender: FDA-Public Use
  Company Number: JP-ALNYLAM PHARMACEUTICALS, INC.-ALN-2019-000878

PATIENT

DRUGS (34)
  1. PANVITAN [Concomitant]
     Active Substance: VITAMINS
     Indication: PROPHYLAXIS
  2. FEXOFENADINE HYDROCHLORIDE. [Concomitant]
     Active Substance: FEXOFENADINE HYDROCHLORIDE
     Indication: RHINITIS ALLERGIC
     Dosage: 60 MILLIGRAM, QD
     Route: 048
  3. TSUMURA SHAKUYAKUKANZOTO EXTRACT GRANULES FOR ETHICAL USE [Concomitant]
     Active Substance: HERBALS
     Indication: MUSCLE SPASMS
     Dosage: 2.5 GRAM, QD
     Route: 048
  4. LAC?B GRANULAR POWDER N [Concomitant]
     Dosage: 1 GRAM, BID
     Dates: end: 20191202
  5. DECADRON [Concomitant]
     Active Substance: DEXAMETHASONE
     Indication: PROPHYLAXIS
     Dosage: 10 MILLIGRAM, SINGLE
     Route: 042
     Dates: start: 20191106
  6. CALONAL [Concomitant]
     Active Substance: ACETAMINOPHEN
     Indication: PROPHYLAXIS
     Dosage: 100 MILLIGRAM, SINGLE
     Route: 048
     Dates: start: 20191106, end: 20191127
  7. FURSULTIAMINE [Concomitant]
     Active Substance: FURSULTIAMINE
     Indication: VITAMIN B1 DEFICIENCY
     Dosage: 50 MILLIGRAM, BID
     Route: 065
     Dates: start: 20200213
  8. RISUMIC [Concomitant]
     Active Substance: AMEZINIUM METILSULFATE
     Indication: HYPOTENSION
     Dosage: 20 MILLIGRAM
     Route: 048
     Dates: end: 20200406
  9. SOSEGON [Concomitant]
     Active Substance: PENTAZOCINE
     Indication: CARDIAC PACEMAKER INSERTION
     Dosage: 15 MILLIGRAM
     Route: 065
     Dates: start: 20200407, end: 20200407
  10. POLARAMINE [Concomitant]
     Active Substance: DEXCHLORPHENIRAMINE MALEATE
     Indication: PROPHYLAXIS
     Dosage: 5 MILLIGRAM, SINGLE
     Route: 042
     Dates: start: 20191106
  11. LYRICA [Concomitant]
     Active Substance: PREGABALIN
     Indication: DISEASE COMPLICATION
     Dosage: 300 MILLIGRAM
     Route: 048
  12. ONPATTRO [Suspect]
     Active Substance: PATISIRAN SODIUM
     Dosage: 11.4 MILLIGRAM
     Route: 041
     Dates: start: 20200219, end: 20200219
  13. CALONAL [Concomitant]
     Active Substance: ACETAMINOPHEN
     Indication: PROPHYLAXIS
     Dosage: 400 MILLIGRAM, SINGLE
     Route: 048
     Dates: start: 20191106, end: 20191127
  14. PANVITAN [Concomitant]
     Active Substance: VITAMINS
     Indication: VITAMIN SUPPLEMENTATION
     Dosage: 1 GRAM, QD
     Route: 048
     Dates: start: 20191106
  15. HEPARININ [Concomitant]
     Indication: CARDIAC PACEMAKER INSERTION
     Dosage: 10 KUNITS
     Route: 065
     Dates: start: 20200407, end: 20200407
  16. IRRIBOW [Concomitant]
     Active Substance: RAMOSETRON HYDROCHLORIDE
     Indication: CONSTIPATION
     Dosage: 5 MICROGRAM, BID
     Route: 048
     Dates: end: 20200228
  17. MIDODRINE HYDROCHLORIDE. [Concomitant]
     Active Substance: MIDODRINE HYDROCHLORIDE
     Indication: HYPOTENSION
     Dosage: 2 MILLIGRAM, BID
     Route: 065
  18. ASPARA POTASSIUM [Concomitant]
     Active Substance: POTASSIUM ASPARTATE
     Dosage: 300 MILLIGRAM, QD
     Route: 048
     Dates: start: 20200429
  19. ONPATTRO [Suspect]
     Active Substance: PATISIRAN SODIUM
     Indication: HEREDITARY NEUROPATHIC AMYLOIDOSIS
     Dosage: 11.1 MILLIGRAM
     Route: 041
     Dates: start: 20191106, end: 20200129
  20. GASTER [Concomitant]
     Active Substance: FAMOTIDINE
     Indication: PROPHYLAXIS
     Dosage: 20 MILLIGRAM, SINGLE
     Route: 042
     Dates: start: 20191106, end: 20200129
  21. XYLOCAINE [Concomitant]
     Active Substance: LIDOCAINE HYDROCHLORIDE
     Indication: CARDIAC PACEMAKER INSERTION
     Dosage: UNK
     Route: 065
     Dates: start: 20200407, end: 20200407
  22. SOLACET F [Concomitant]
     Active Substance: CALCIUM CHLORIDE\POTASSIUM CHLORIDE\SODIUM ACETATE\SODIUM CHLORIDE
     Indication: CARDIAC PACEMAKER INSERTION
     Dosage: UNK
     Route: 065
     Dates: start: 20200407, end: 20200407
  23. IRRIBOW [Concomitant]
     Active Substance: RAMOSETRON HYDROCHLORIDE
     Indication: DIARRHOEA
  24. LYRICA [Concomitant]
     Active Substance: PREGABALIN
     Dosage: 75 MILLIGRAM, BID
     Route: 048
  25. LAC?B GRANULAR POWDER N [Concomitant]
     Indication: ENTEROCOLITIS
     Dosage: 4 MILLIGRAM
     Route: 048
  26. ONPATTRO [Suspect]
     Active Substance: PATISIRAN SODIUM
     Dosage: 10.5 MILLIGRAM
     Route: 041
     Dates: start: 20200311, end: 20200422
  27. CALONAL [Concomitant]
     Active Substance: ACETAMINOPHEN
     Dosage: 500 MILLIGRAM, SINGLE
     Route: 048
     Dates: start: 20191218
  28. IOMERON [Concomitant]
     Active Substance: IOMEPROL
     Indication: CARDIAC PACEMAKER INSERTION
     Dosage: UNK
     Route: 065
     Dates: start: 20200407, end: 20200407
  29. CEFAZOLIN NA [Concomitant]
     Active Substance: CEFAZOLIN SODIUM
     Indication: CARDIAC PACEMAKER INSERTION
     Dosage: 2 GRAM
     Route: 065
     Dates: start: 20200407, end: 20200407
  30. FAMOTIDINE. [Concomitant]
     Active Substance: FAMOTIDINE
     Indication: PROPHYLAXIS
     Dosage: 20 MILLIGRAM, QD
     Route: 065
     Dates: start: 20200219
  31. LOPERAMIDE [Concomitant]
     Active Substance: LOPERAMIDE
     Indication: DIARRHOEA
     Dosage: 1 MILLIGRAM, BID
     Route: 048
     Dates: end: 20200228
  32. AMEZINIUM METILSULFATE [Concomitant]
     Active Substance: AMEZINIUM METILSULFATE
     Indication: HYPOTENSION
     Dosage: 10 MILLIGRAM, BID
     Route: 048
     Dates: start: 20200407
  33. AZOSEMIDE [Concomitant]
     Active Substance: AZOSEMIDE
     Indication: CARDIAC FAILURE
     Dosage: 15 MILLIGRAM, QD
     Route: 048
     Dates: start: 20191116, end: 20201217
  34. ASPARA POTASSIUM [Concomitant]
     Active Substance: POTASSIUM ASPARTATE
     Indication: HYPOKALAEMIA
     Dosage: 300 MILLIGRAM, TID
     Route: 048
     Dates: start: 20200324, end: 20200428

REACTIONS (10)
  - Seizure [Recovered/Resolved]
  - Oedema peripheral [Recovered/Resolved]
  - Muscular weakness [Recovered/Resolved]
  - Muscular weakness [Unknown]
  - Pleural effusion [Recovered/Resolved]
  - Dehydration [Unknown]
  - Neurogenic bladder [Recovered/Resolved]
  - Cardiac failure [Recovered/Resolved]
  - Muscle spasms [Unknown]
  - Atrial fibrillation [Not Recovered/Not Resolved]

NARRATIVE: CASE EVENT DATE: 20191111
